FAERS Safety Report 6877910-9 (Version None)
Quarter: 2010Q3

REPORT INFORMATION
  Report Type: 
  Country: None (occurrence: None)
  Receive Date: 20100727
  Receipt Date: 20100722
  Transmission Date: 20110219
  Serious: Yes (Other)
  Sender: FDA-Public Use
  Company Number: FR-MERCK-1007FRA00096

PATIENT
  Age: 83 Year
  Sex: Male

DRUGS (7)
  1. ZETIA [Suspect]
     Route: 048
     Dates: start: 20090218
  2. OFLOXACIN [Suspect]
     Indication: ESCHERICHIA URINARY TRACT INFECTION
     Route: 042
     Dates: start: 20090218, end: 20090219
  3. OFLOXACIN [Suspect]
     Route: 048
     Dates: start: 20090220, end: 20090303
  4. NEBIVOLOL HYDROCHLORIDE [Suspect]
     Route: 048
     Dates: start: 20090219
  5. CANDESARTAN CILEXETIL [Suspect]
     Route: 048
     Dates: start: 20090219
  6. ASPIRIN LYSINE [Concomitant]
     Route: 048
     Dates: start: 20090219
  7. ACETAMINOPHEN [Concomitant]
     Route: 048
     Dates: start: 20090219

REACTIONS (1)
  - MUSCLE RUPTURE [None]
